FAERS Safety Report 6190958-5 (Version None)
Quarter: 2009Q2

REPORT INFORMATION
  Report Type: 
  Country: None (occurrence: None)
  Receive Date: 20090513
  Receipt Date: 20090428
  Transmission Date: 20091009
  Serious: Yes (Life-Threatening)
  Sender: FDA-Public Use
  Company Number: 2009S1006150

PATIENT
  Age: 24 Year
  Sex: Male

DRUGS (4)
  1. AZATHIOPRINE [Suspect]
     Indication: CROHN'S DISEASE
     Dates: start: 20030101
  2. INFLIXIMAB (INFLIXIMAB) [Suspect]
     Indication: CROHN'S DISEASE
     Dosage: 5 MG; 10 MG
     Dates: start: 20040101
  3. METHOTREXATE [Suspect]
     Indication: CROHN'S DISEASE
     Dosage: 25 MG; WEEKLY
  4. PREDNISOLONE [Suspect]
     Indication: CROHN'S DISEASE
     Dosage: 40 MG; DAILY

REACTIONS (7)
  - CONDITION AGGRAVATED [None]
  - CROHN'S DISEASE [None]
  - HYPOTENSION [None]
  - MENINGITIS LISTERIA [None]
  - MYALGIA [None]
  - NIGHT SWEATS [None]
  - TACHYCARDIA [None]
